FAERS Safety Report 9951398 (Version 1)
Quarter: 2014Q1

REPORT INFORMATION
  Report Type: Spontaneous
  Country: FR (occurrence: FR)
  Receive Date: 20140304
  Receipt Date: 20140304
  Transmission Date: 20141002
  Serious: Yes (Other)
  Sender: FDA-Public Use
  Company Number: FR-EISAI INC-E3810-06929-SPO-FR

PATIENT
  Age: 28 Year
  Sex: Male

DRUGS (3)
  1. PARIET (RABEPRAZOLE) [Suspect]
     Indication: PRODUCT USED FOR UNKNOWN INDICATION
     Route: 065
  2. AERIUS [Concomitant]
  3. SINGULAIR [Concomitant]

REACTIONS (2)
  - Neuralgia [Unknown]
  - Arthralgia [Unknown]
